FAERS Safety Report 10071337 (Version 1)
Quarter: 2014Q2

REPORT INFORMATION
  Report Type: Spontaneous
  Country: US (occurrence: US)
  Receive Date: 20140410
  Receipt Date: 20140410
  Transmission Date: 20141212
  Serious: Yes (Hospitalization)
  Sender: FDA-Public Use
  Company Number: US-INCYTE CORPORATION-2014IN000935

PATIENT
  Age: 63 Year
  Sex: Female

DRUGS (5)
  1. JAKAFI [Suspect]
     Indication: MYELOFIBROSIS
     Dosage: 20 MG, BID
     Route: 065
     Dates: start: 2014
  2. SYNTHROID [Concomitant]
  3. DILTIAZEM [Concomitant]
  4. DIGOXIN [Concomitant]
  5. BUMETANIDE [Concomitant]

REACTIONS (1)
  - Localised intraabdominal fluid collection [Recovered/Resolved]
